FAERS Safety Report 5314306-5 (Version None)
Quarter: 2007Q2

REPORT INFORMATION
  Report Type: 
  Country: None (occurrence: None)
  Receive Date: 20070425
  Receipt Date: 20070321
  Transmission Date: 20071010
  Serious: Yes (Other)
  Sender: FDA-Public Use
  Company Number: 2007PV000011

PATIENT
  Age: 68 Year
  Sex: Female

DRUGS (1)
  1. DEPODUR [Suspect]
     Indication: PAIN
     Dosage: 15 MG; X1; ED
     Route: 008

REACTIONS (3)
  - COMA [None]
  - PAIN [None]
  - RESPIRATORY DEPRESSION [None]
